FAERS Safety Report 20500025 (Version 1)
Quarter: 2022Q1

REPORT INFORMATION
  Report Type: Spontaneous
  Country: US (occurrence: US)
  Receive Date: 20220222
  Receipt Date: 20220222
  Transmission Date: 20220424
  Serious: No
  Sender: FDA-Public Use
  Company Number: US-UCBSA-2021035844

PATIENT
  Sex: Female

DRUGS (3)
  1. KEPPRA [Suspect]
     Active Substance: LEVETIRACETAM
     Indication: Product used for unknown indication
     Dosage: UNK
  2. XELODA [Concomitant]
     Active Substance: CAPECITABINE
     Indication: Breast cancer
  3. TUKYSA [Concomitant]
     Active Substance: TUCATINIB
     Indication: Breast cancer female

REACTIONS (2)
  - Hepatic enzyme increased [Unknown]
  - Hospice care [Unknown]
